FAERS Safety Report 8196868-6 (Version None)
Quarter: 2012Q1

REPORT INFORMATION
  Report Type: 
  Country: None (occurrence: None)
  Receive Date: 20120309
  Receipt Date: 20120223
  Transmission Date: 20120608
  Serious: Yes (Hospitalization)
  Sender: FDA-Public Use
  Company Number: DE-CELGENEUS-062-50794-12022807

PATIENT
  Age: 71 Year
  Sex: Male
  Weight: 75.2 kg

DRUGS (8)
  1. VIDAZA [Suspect]
     Route: 058
  2. VALERIAN [Concomitant]
     Route: 041
  3. VIDAZA [Suspect]
     Route: 058
     Dates: start: 20110401
  4. CIPROFLOXACIN [Concomitant]
     Route: 041
  5. FENISTIL [Concomitant]
     Route: 041
  6. VIVINOX [Concomitant]
     Route: 041
  7. POLYETHYLENE GLYCOL [Concomitant]
     Route: 041
  8. WHOLE BLOOD [Concomitant]
     Route: 041

REACTIONS (1)
  - ORGANISING PNEUMONIA [None]
